FAERS Safety Report 5963091-2 (Version None)
Quarter: 2008Q4

REPORT INFORMATION
  Report Type: 
  Country: None (occurrence: None)
  Receive Date: 20081124
  Receipt Date: 20081111
  Transmission Date: 20090506
  Serious: Yes (Death)
  Sender: FDA-Public Use
  Company Number: CL-NOVOPROD-271191

PATIENT
  Age: 29 Year
  Sex: Male

DRUGS (1)
  1. NOVOSEVEN [Suspect]
     Indication: HAEMORRHAGE
     Dosage: 2.4MGX4
     Route: 042
     Dates: start: 20080113, end: 20080113

REACTIONS (1)
  - SHOCK HAEMORRHAGIC [None]
